FAERS Safety Report 5570302-4 (Version None)
Quarter: 2007Q4

REPORT INFORMATION
  Report Type: 
  Country: None (occurrence: None)
  Receive Date: 20071219
  Receipt Date: 20071219
  Transmission Date: 20080405
  Serious: Yes (Hospitalization)
  Sender: FDA-Public Use
  Company Number: None

PATIENT
  Sex: Male
  Weight: 57.9 kg

DRUGS (5)
  1. CYCLOPHOSPHAMIDE [Suspect]
     Dosage: 1403 MG
  2. DOXORUBICIN HYDROCHLORIDE [Suspect]
     Dosage: 94 MG
  3. PREDNISONE TAB [Suspect]
     Dosage: 375 MG
  4. RITUXIMAB (MOAB C2B8 ANTI CD20, CHIMERIC) [Suspect]
     Dosage: 700 MG
  5. VINCRISTINE SULFATE [Suspect]
     Dosage: 2 MG

REACTIONS (2)
  - CONDITION AGGRAVATED [None]
  - MUSCULAR WEAKNESS [None]
